FAERS Safety Report 19024224 (Version 3)
Quarter: 2021Q3

REPORT INFORMATION
  Report Type: Spontaneous
  Country: US (occurrence: US)
  Receive Date: 20210317
  Receipt Date: 20210923
  Transmission Date: 20211014
  Serious: No
  Sender: FDA-Public Use
  Company Number: US-AMGEN-USASP2021041069

PATIENT
  Age: 44 Year
  Sex: Female
  Weight: 58.9 kg

DRUGS (3)
  1. MVASI [Suspect]
     Active Substance: BEVACIZUMAB-AWWB
     Dosage: 150 MILLIGRAM
     Route: 065
     Dates: start: 20210205
  2. MVASI [Suspect]
     Active Substance: BEVACIZUMAB-AWWB
     Dosage: 150 MILLIGRAM
     Route: 065
     Dates: start: 20210319
  3. MVASI [Suspect]
     Active Substance: BEVACIZUMAB-AWWB
     Indication: ANAPLASTIC ASTROCYTOMA
     Dosage: UNK
     Route: 065
     Dates: start: 20200807

REACTIONS (1)
  - Off label use [Unknown]

NARRATIVE: CASE EVENT DATE: 20200807
